FAERS Safety Report 7211268-0 (Version None)
Quarter: 2010Q4

REPORT INFORMATION
  Report Type: 
  Country: None (occurrence: None)
  Receive Date: 20101223
  Receipt Date: 20101215
  Transmission Date: 20110411
  Serious: Yes (Hospitalization)
  Sender: FDA-Public Use
  Company Number: DSA_44528_2010

PATIENT
  Age: 78 Year
  Sex: Male

DRUGS (9)
  1. ENALAPRIL MALEATE [Suspect]
     Indication: HYPERTENSION
     Dosage: (5 MG QD ORAL)
     Route: 048
     Dates: start: 20090101
  2. FUROSEMIDE [Suspect]
     Indication: HYPERTENSION
     Dosage: (25 MG QD ORAL)
     Route: 048
     Dates: start: 20090101, end: 20101007
  3. FUROSEMIDE W/SPIRONOLACTONE (FUROSEMIDE/SPIRONOLACTONE) [Suspect]
     Indication: HYPERTENSION
     Dosage: (25MG/37MG ONCE A DAY ORAL)
     Route: 048
     Dates: start: 20090101, end: 20101007
  4. CARVEDILOL [Suspect]
     Indication: HYPERTENSION
     Dosage: (12.5 MG QD ORAL)
     Route: 048
     Dates: start: 20090101, end: 20101007
  5. ASPIRIN [Concomitant]
  6. TORVAST [Concomitant]
  7. PLAVIX [Concomitant]
  8. TAPAZOLE [Concomitant]
  9. PARIET [Concomitant]

REACTIONS (4)
  - HAEMOGLOBIN DECREASED [None]
  - HYPOTENSION [None]
  - RED BLOOD CELL COUNT DECREASED [None]
  - TROPONIN T INCREASED [None]
